FAERS Safety Report 8799894 (Version 2)
Quarter: 2012Q4

REPORT INFORMATION
  Report Type: Report from Study
  Country: US (occurrence: US)
  Receive Date: 20120919
  Receipt Date: 20121010
  Transmission Date: 20130627
  Serious: Yes (Other)
  Sender: FDA-Public Use
  Company Number: US-009507513-1201USA01073

PATIENT
  Age: 57 Year
  Sex: Male
  Weight: 77.56 kg

DRUGS (18)
  1. VANIPREVIR [Suspect]
     Indication: CHRONIC HEPATITIS C
     Dosage: 2.00 DF, qam
     Route: 048
     Dates: start: 20110304, end: 20120106
  2. VANIPREVIR [Suspect]
     Dosage: 2 DF, qpm
     Route: 048
     Dates: start: 20110304, end: 20120105
  3. VANIPREVIR [Suspect]
     Dosage: 2 DF, qam
     Route: 048
     Dates: start: 20120109, end: 20120109
  4. COPEGUS [Suspect]
     Indication: CHRONIC HEPATITIS C
     Dosage: 3 DF, qam
     Route: 048
     Dates: start: 20110304, end: 20120105
  5. COPEGUS [Suspect]
     Dosage: 3 DF, qpm
     Route: 048
     Dates: start: 20110304, end: 20120105
  6. COPEGUS [Suspect]
     Dosage: 3 DF, qam
     Route: 048
     Dates: start: 20120109, end: 20120109
  7. PEGINTERFERON ALFA-2A [Suspect]
     Indication: CHRONIC HEPATITIS C
     Dosage: 180 Microgram, qw
     Route: 058
     Dates: start: 20110304, end: 20111230
  8. METFORMIN [Suspect]
     Indication: DIABETES MELLITUS
     Dosage: 500 mg, bid
     Route: 048
     Dates: start: 20110925, end: 20111205
  9. RAMIPRIL [Suspect]
     Indication: PROPHYLAXIS
     Dosage: 2.5 mg, qd
     Route: 048
     Dates: start: 200903, end: 20111229
  10. PIROXICAM [Suspect]
     Indication: BUNION
     Dosage: 20 mg, qd
     Route: 048
     Dates: start: 200903, end: 20111229
  11. XANTHOPHYLL [Concomitant]
     Dates: start: 200603
  12. OMEPRAZOLE [Concomitant]
     Dates: start: 200603
  13. TRAZODONE HYDROCHLORIDE [Concomitant]
     Dates: start: 200403
  14. AMBIEN [Concomitant]
     Indication: SLEEP DISORDER
     Dosage: 12.5 mg, qd
     Route: 048
     Dates: start: 20101216
  15. FLONASE [Concomitant]
     Indication: HYPERSENSITIVITY
     Dosage: 1 spray reported as strength and dose was 1
     Route: 045
     Dates: start: 20090101
  16. METFORMIN [Concomitant]
     Indication: DIABETES MELLITUS
     Dosage: 500 mg, qd
     Route: 048
     Dates: start: 20111206
  17. LEVOCETIRIZINE [Concomitant]
     Indication: HYPERSENSITIVITY
     Dosage: 5 mg, qd
     Route: 048
     Dates: start: 20110318
  18. ROSUVASTATIN CALCIUM [Concomitant]
     Indication: BLOOD CHOLESTEROL INCREASED
     Dosage: 10 mg, qd
     Route: 048
     Dates: start: 20120304

REACTIONS (2)
  - Alanine aminotransferase increased [Recovered/Resolved]
  - Aspartate aminotransferase increased [Recovered/Resolved]
